FAERS Safety Report 9588203 (Version 5)
Quarter: 2013Q4

REPORT INFORMATION
  Report Type: Report from Study
  Country: US (occurrence: US)
  Receive Date: 20131003
  Receipt Date: 20131025
  Transmission Date: 20140711
  Serious: Yes (Disabling)
  Sender: FDA-Public Use
  Company Number: US-ROCHE-1259067

PATIENT
  Age: 60 Year
  Sex: Female

DRUGS (5)
  1. LUCENTIS [Suspect]
     Indication: DIABETIC RETINAL OEDEMA
     Route: 065
  2. LUCENTIS [Suspect]
     Indication: MACULAR OEDEMA
  3. LUCENTIS [Suspect]
     Indication: DIABETIC RETINOPATHY
  4. LUCENTIS [Suspect]
     Indication: CATARACT NUCLEAR
  5. INSULIN [Concomitant]

REACTIONS (7)
  - Blindness [Unknown]
  - Visual acuity reduced [Unknown]
  - Vision blurred [Unknown]
  - Abnormal sensation in eye [Unknown]
  - Eye pain [Unknown]
  - Visual field defect [Unknown]
  - Inappropriate schedule of drug administration [Unknown]
